FAERS Safety Report 13554277 (Version 1)
Quarter: 2017Q2

REPORT INFORMATION
  Report Type: Spontaneous
  Country: US (occurrence: US)
  Receive Date: 20170517
  Receipt Date: 20170517
  Transmission Date: 20170830
  Serious: No
  Sender: FDA-Public Use
  Company Number: None

PATIENT
  Age: 9 Year
  Sex: Male
  Weight: 31.75 kg

DRUGS (1)
  1. VYVANSE [Suspect]
     Active Substance: LISDEXAMFETAMINE DIMESYLATE
     Indication: ATTENTION DEFICIT/HYPERACTIVITY DISORDER
     Dosage: FREQUENCY - 1 PILL IN AM - ONCE DAILY - PO?
     Route: 048
     Dates: start: 201412, end: 20170427

REACTIONS (13)
  - Weight decreased [None]
  - Aggression [None]
  - Verbal abuse [None]
  - Anger [None]
  - Irritability [None]
  - Abnormal behaviour [None]
  - Mania [None]
  - Depression [None]
  - Educational problem [None]
  - Loss of personal independence in daily activities [None]
  - Anxiety [None]
  - Mood swings [None]
  - Growth failure [None]

NARRATIVE: CASE EVENT DATE: 201412
